FAERS Safety Report 8896392 (Version 1)
Quarter: 2012Q4

REPORT INFORMATION
  Report Type: Spontaneous
  Country: IT (occurrence: None)
  Receive Date: 20121102
  Receipt Date: 20121102
  Transmission Date: 20130627
  Serious: Yes (Other)
  Sender: FDA-Public Use
  Company Number: 1462424

PATIENT
  Age: 52 Year
  Sex: Male

DRUGS (4)
  1. PACLITAXEL [Suspect]
     Indication: LUNG CANCER
     Dosage: 130 MG MILLIGRAM(S), TOTAL, INTRAVENOUS
     Route: 042
     Dates: start: 20120606, end: 20120606
  2. KYTRIL [Concomitant]
  3. RANIDIL [Concomitant]
  4. TRIMETON [Concomitant]

REACTIONS (4)
  - Dysphonia [None]
  - Sense of oppression [None]
  - Rash [None]
  - Hypersensitivity [None]
